FAERS Safety Report 4658158-5 (Version None)
Quarter: 2005Q2

REPORT INFORMATION
  Report Type: 
  Country: None (occurrence: None)
  Receive Date: 20050504
  Receipt Date: 20040729
  Transmission Date: 20051028
  Serious: Yes (Other)
  Sender: FDA-Public Use
  Company Number: PHEH2004US06688

PATIENT
  Age: 53 Year
  Sex: Female

DRUGS (5)
  1. DIOVAN HCT [Suspect]
     Indication: HYPERTENSION
     Dosage: ORAL
     Route: 048
     Dates: start: 20040617
  2. LOPRESSOR [Suspect]
     Indication: HYPERTENSION
  3. COZAAR [Suspect]
     Indication: HYPERTENSION
  4. SPIRONOLACTONE [Suspect]
     Indication: HYPERTENSION
  5. CATAPRES-TTS-1 [Suspect]
     Indication: HYPERTENSION
     Dosage: UNK

REACTIONS (1)
  - BLOOD PRESSURE INCREASED [None]
